FAERS Safety Report 25511107 (Version 1)
Quarter: 2025Q3

REPORT INFORMATION
  Report Type: Spontaneous
  Country: US (occurrence: None)
  Receive Date: 20250703
  Receipt Date: 20250703
  Transmission Date: 20251020
  Serious: Yes (Hospitalization)
  Sender: FDA-CTU
  Company Number: None

PATIENT
  Age: 80 Year
  Sex: Female

DRUGS (4)
  1. AMBRISENTAN [Suspect]
     Active Substance: AMBRISENTAN
     Indication: Pulmonary arterial hypertension
     Dosage: FREQUENCY : DAILY;?
     Route: 048
     Dates: start: 20190422
  2. TADALAFIL [Suspect]
     Active Substance: TADALAFIL
     Indication: Pulmonary arterial hypertension
     Route: 048
     Dates: start: 20240930
  3. TYVASO DPI [Suspect]
     Active Substance: TREPROSTINIL
  4. DEVICE [Suspect]
     Active Substance: DEVICE

REACTIONS (3)
  - Cardiac failure congestive [None]
  - Affective disorder [None]
  - Decreased activity [None]

NARRATIVE: CASE EVENT DATE: 20250602
